FAERS Safety Report 7786183-4 (Version None)
Quarter: 2011Q3

REPORT INFORMATION
  Report Type: 
  Country: None (occurrence: None)
  Receive Date: 20110929
  Receipt Date: 20110805
  Transmission Date: 20111222
  Serious: Yes (Other)
  Sender: FDA-Public Use
  Company Number: US-PFIZER INC-2011182380

PATIENT

DRUGS (8)
  1. SEVOFLURANE [Suspect]
     Indication: ANAESTHESIA PROCEDURE
     Dosage: 1.0 %, UNK
     Route: 064
  2. ROCURONIUM [Suspect]
     Indication: ANAESTHESIA PROCEDURE
     Route: 064
  3. LABETALOL HCL [Suspect]
     Indication: HYPERTENSION
     Dosage: 10 MG, SINGLE
     Route: 064
  4. PROPOFOL [Suspect]
     Dosage: 100 MG, UNK
     Route: 064
  5. FUROSEMIDE [Suspect]
     Dosage: 10 MG, SINGLE
     Route: 064
  6. FUROSEMIDE [Suspect]
     Dosage: 10 MG, SINGLE
     Route: 064
  7. SUCCINYLCHOLINE CHLORIDE [Suspect]
     Dosage: 120 MG, UNK
     Route: 064
  8. LIDOCAINE HYDROCHLORIDE [Suspect]
     Dosage: 100 MG, UNK
     Route: 064

REACTIONS (2)
  - RESPIRATORY FAILURE [None]
  - MATERNAL EXPOSURE DURING PREGNANCY [None]
